FAERS Safety Report 6531308-1 (Version None)
Quarter: 2009Q4

REPORT INFORMATION
  Report Type: 
  Country: None (occurrence: None)
  Receive Date: 20091222
  Receipt Date: 20091111
  Transmission Date: 20100525
  Serious: No
  Sender: FDA-Public Use
  Company Number: ALL1-2009-03628

PATIENT
  Age: 51 Year
  Sex: Female
  Weight: 88.2 kg

DRUGS (6)
  1. VYVANSE [Suspect]
     Indication: DISTURBANCE IN ATTENTION
     Dosage: 1X/DAY:QD, ORAL ; 30 MG, 1X/DAY:QD, ORAL
     Route: 048
     Dates: start: 20091109
  2. VYVANSE [Suspect]
     Indication: HYPERSOMNIA
     Dosage: 1X/DAY:QD, ORAL ; 30 MG, 1X/DAY:QD, ORAL
     Route: 048
     Dates: start: 20091109
  3. XANAX [Concomitant]
  4. WELLBUTRIN XL [Concomitant]
  5. EFFEXOR /01233801/ (VENLAFAXINE) [Concomitant]
  6. ATENOLOL [Concomitant]

REACTIONS (1)
  - NERVOUSNESS [None]
